FAERS Safety Report 10227906 (Version 2)
Quarter: 2014Q3

REPORT INFORMATION
  Report Type: Spontaneous
  Country: US (occurrence: US)
  Receive Date: 20140610
  Receipt Date: 20140715
  Transmission Date: 20150326
  Serious: Yes (Other)
  Sender: FDA-Public Use
  Company Number: US-PFIZER INC-2014153254

PATIENT
  Sex: Female

DRUGS (2)
  1. LYRICA [Suspect]
     Active Substance: PREGABALIN
     Indication: PAIN
     Dosage: 90 MG, 1X/DAY
     Dates: start: 2007
  2. LYRICA [Suspect]
     Active Substance: PREGABALIN
     Dosage: 90 MG, 2X/DAY

REACTIONS (12)
  - Hypersensitivity [Recovered/Resolved]
  - Eye pain [Unknown]
  - Somnolence [Recovered/Resolved]
  - Glare [Unknown]
  - Blood pressure increased [Unknown]
  - Sensory loss [Recovered/Resolved]
  - Visual acuity reduced [Not Recovered/Not Resolved]
  - Hallucination [Recovered/Resolved]
  - Rash [Recovered/Resolved]
  - Formication [Recovered/Resolved]
  - Dizziness [Recovered/Resolved]
  - Middle insomnia [Recovered/Resolved]
